FAERS Safety Report 6006673-4 (Version None)
Quarter: 2008Q4

REPORT INFORMATION
  Report Type: 
  Country: None (occurrence: None)
  Receive Date: 20081217
  Receipt Date: 20081205
  Transmission Date: 20090506
  Serious: Yes (Death, Hospitalization)
  Sender: FDA-Public Use
  Company Number: US-BRISTOL-MYERS SQUIBB COMPANY-14419725

PATIENT
  Age: 65 Year
  Sex: Male

DRUGS (16)
  1. IXABEPILONE [Suspect]
     Indication: NON-SMALL CELL LUNG CANCER
     Dosage: 1PER DAY FOR 5 DAYS
     Route: 048
     Dates: start: 20081117, end: 20081121
  2. ADVAIR DISKUS 100/50 [Concomitant]
     Route: 055
  3. XANAX [Concomitant]
     Route: 048
  4. ALTACE [Concomitant]
     Dosage: CAPSLUE
     Route: 048
  5. APIDRA [Concomitant]
     Dosage: INJECTION
     Route: 051
  6. AVODART [Concomitant]
     Dosage: CAPSULE
     Route: 048
  7. COUMADIN [Concomitant]
     Dosage: 2 - 5 MG ALTERNATING DOSES
     Route: 048
  8. DIGOXIN TAB [Concomitant]
     Route: 048
  9. DILTIAZEM CD [Concomitant]
     Dosage: CAPSULE SR Q24HR
     Route: 048
  10. FOLIC ACID [Concomitant]
     Dosage: INJECTION
     Route: 051
  11. HALCION [Concomitant]
     Dosage: TAB
     Route: 048
  12. HYDROCHLOROTHIAZIDE [Concomitant]
     Dosage: TABS
     Route: 048
  13. LANTUS [Concomitant]
     Dosage: 80-100 UNITS
     Route: 058
  14. LOPRESSOR [Concomitant]
     Route: 048
  15. LYRICA [Concomitant]
     Dosage: CAP
     Route: 048
  16. ZOLOFT [Concomitant]
     Route: 048

REACTIONS (4)
  - DIARRHOEA [None]
  - FEBRILE NEUTROPENIA [None]
  - NEUTROPENIA [None]
  - SUDDEN DEATH [None]
